FAERS Safety Report 15366989 (Version 7)
Quarter: 2019Q1

REPORT INFORMATION
  Report Type: Spontaneous
  Country: IE (occurrence: IE)
  Receive Date: 20180910
  Receipt Date: 20190306
  Transmission Date: 20190417
  Serious: Yes (Other)
  Sender: FDA-Public Use
  Company Number: IE-PFIZER INC-2018355568

PATIENT
  Age: 48 Year
  Sex: Male

DRUGS (7)
  1. HALCION [Suspect]
     Active Substance: TRIAZOLAM
     Dosage: 250 UG, UNK (0.25MG-0.5MG DAILY)
     Route: 048
     Dates: start: 20180706, end: 20180709
  2. DALMANE [Suspect]
     Active Substance: FLURAZEPAM HYDROCHLORIDE
     Indication: INSOMNIA
     Dosage: 15 MG, UNK
  3. HALCION [Suspect]
     Active Substance: TRIAZOLAM
     Indication: INSOMNIA
     Dosage: 250 UG, UNK (0.25MG-0.5MG)
     Route: 048
     Dates: start: 20180706, end: 20180709
  4. SPORANOX [Concomitant]
     Active Substance: ITRACONAZOLE
     Indication: FUNGAL INFECTION
     Dosage: 100 MG, UNK
     Route: 048
     Dates: start: 20180618, end: 20180706
  5. XANAX [Suspect]
     Active Substance: ALPRAZOLAM
     Dosage: UNK
  6. NORTEM [Suspect]
     Active Substance: TEMAZEPAM
     Dosage: UNK
  7. DIFLUCAN [Concomitant]
     Active Substance: FLUCONAZOLE
     Indication: FUNGAL INFECTION
     Dosage: 150 MG, UNK
     Route: 048
     Dates: start: 20180611, end: 20180706

REACTIONS (23)
  - Dysgeusia [Unknown]
  - Diplopia [Not Recovered/Not Resolved]
  - Drug ineffective [Unknown]
  - Decreased appetite [Not Recovered/Not Resolved]
  - Therapeutic response unexpected [Unknown]
  - Neuropathy peripheral [Not Recovered/Not Resolved]
  - Product lot number issue [Unknown]
  - Skin odour abnormal [Unknown]
  - Heterophoria [Unknown]
  - Dry eye [Not Recovered/Not Resolved]
  - Vision blurred [Not Recovered/Not Resolved]
  - Diarrhoea [Unknown]
  - Oral candidiasis [Unknown]
  - Rash [Not Recovered/Not Resolved]
  - Increased appetite [Not Recovered/Not Resolved]
  - Eyelid disorder [Not Recovered/Not Resolved]
  - Suspected product tampering [Unknown]
  - Malaise [Not Recovered/Not Resolved]
  - Thirst [Not Recovered/Not Resolved]
  - Osteoporosis [Not Recovered/Not Resolved]
  - Pre-existing condition improved [Unknown]
  - Disturbance in attention [Not Recovered/Not Resolved]
  - Paronychia [Not Recovered/Not Resolved]

NARRATIVE: CASE EVENT DATE: 201805
